FAERS Safety Report 9771262 (Version 2)
Quarter: 2013Q4

REPORT INFORMATION
  Report Type: Spontaneous
  Country: US (occurrence: US)
  Receive Date: 20131218
  Receipt Date: 20131218
  Transmission Date: 20140711
  Serious: Yes (Other)
  Sender: FDA-Public Use
  Company Number: US-RB-054732-13

PATIENT
  Age: 25 Year
  Sex: Female
  Weight: 103 kg

DRUGS (3)
  1. BUPRENORPHINE [Suspect]
     Indication: DRUG DEPENDENCE
     Dosage: TAKING 16 MG IN THE MORNING AND 4 MG IN THE EVENING
     Route: 060
     Dates: start: 20130504
  2. NICOTINE [Concomitant]
     Indication: PRODUCT USED FOR UNKNOWN INDICATION
     Dosage: 1 PACK DAILY; SWITCHED TO ELECTRONIC CIGARETTES ON 10-OCT-2013
     Route: 055
     Dates: start: 199908
  3. IRON [Concomitant]
     Indication: PRODUCT USED FOR UNKNOWN INDICATION
     Dosage: DOSING DETAILS UNKNOWN
     Route: 065

REACTIONS (3)
  - Maternal exposure during pregnancy [Recovered/Resolved]
  - Pre-eclampsia [Recovered/Resolved]
  - Bacterial infection [Recovered/Resolved]
